FAERS Safety Report 4754097-X (Version None)
Quarter: 2005Q3

REPORT INFORMATION
  Report Type: 
  Country: None (occurrence: None)
  Receive Date: 20050826
  Receipt Date: 20050818
  Transmission Date: 20060218
  Serious: Yes (Other)
  Sender: FDA-Public Use
  Company Number: GB-MERCK-0508GBR00111

PATIENT
  Age: 77 Year
  Sex: Male

DRUGS (5)
  1. ALENDRONATE SODIUM [Suspect]
     Indication: OSTEOPOROSIS
     Route: 048
     Dates: end: 20050808
  2. PERINDOPRIL [Concomitant]
     Route: 048
  3. CALCIUM CARBONATE [Concomitant]
     Route: 065
  4. ASPIRIN [Concomitant]
     Route: 048
  5. FOSAMAX [Suspect]
     Indication: OSTEOPOROSIS
     Route: 048

REACTIONS (2)
  - GASTROINTESTINAL HAEMORRHAGE [None]
  - OESOPHAGEAL HAEMORRHAGE [None]
